FAERS Safety Report 11272944 (Version 1)
Quarter: 2015Q3

REPORT INFORMATION
  Report Type: Spontaneous
  Country: US (occurrence: US)
  Receive Date: 20150715
  Receipt Date: 20150715
  Transmission Date: 20151125
  Serious: No
  Sender: FDA-Public Use
  Company Number: US-PFIZER INC-2015232700

PATIENT
  Age: 63 Year
  Sex: Male
  Weight: 91 kg

DRUGS (2)
  1. VIAGRA [Suspect]
     Active Substance: SILDENAFIL CITRATE
     Indication: ERECTILE DYSFUNCTION
     Dosage: UNK
     Dates: start: 2012
  2. VIAGRA [Suspect]
     Active Substance: SILDENAFIL CITRATE
     Indication: DISTURBANCE IN SEXUAL AROUSAL

REACTIONS (4)
  - Drug ineffective [Recovered/Resolved]
  - Gastric disorder [Recovered/Resolved]
  - Intentional product misuse [Unknown]
  - Suspected counterfeit product [Recovered/Resolved]

NARRATIVE: CASE EVENT DATE: 2012
